FAERS Safety Report 17285927 (Version 2)
Quarter: 2020Q1

REPORT INFORMATION
  Report Type: Spontaneous
  Country: US (occurrence: US)
  Receive Date: 20200118
  Receipt Date: 20200207
  Transmission Date: 20200409
  Serious: No
  Sender: FDA-Public Use
  Company Number: US-009507513-2001USA003708

PATIENT
  Sex: Female

DRUGS (3)
  1. TEMODAR [Suspect]
     Active Substance: TEMOZOLOMIDE
     Indication: BRAIN NEOPLASM MALIGNANT
     Dosage: TAKE 1 CAPSULE BY MOUTH DAYS 1-5 EVERY 28 DAYS WITH 250 MG CAPSULE FOR TOTAL DAILY DOSE OF 350 MG
     Route: 048
     Dates: start: 201908
  2. TEMODAR [Suspect]
     Active Substance: TEMOZOLOMIDE
     Indication: BRAIN NEOPLASM MALIGNANT
     Dosage: TAKE 1 CAPSULE BY MOUTH DAYS 1-5 EVERY 28 DAYS WITH 100 MG CAPSULE FOR TOTAL DAILY DOSE OF 350 MG
     Route: 048
     Dates: start: 201908
  3. TEMODAR [Suspect]
     Active Substance: TEMOZOLOMIDE
     Dosage: UNK
     Dates: start: 20200129

REACTIONS (6)
  - Cognitive disorder [Not Recovered/Not Resolved]
  - Fatigue [Not Recovered/Not Resolved]
  - Onychoclasis [Not Recovered/Not Resolved]
  - Memory impairment [Not Recovered/Not Resolved]
  - Irritability [Not Recovered/Not Resolved]
  - Platelet count decreased [Not Recovered/Not Resolved]
